FAERS Safety Report 17022636 (Version 3)
Quarter: 2019Q4

REPORT INFORMATION
  Report Type: Report from Study
  Country: US (occurrence: US)
  Receive Date: 20191112
  Receipt Date: 20191213
  Transmission Date: 20200122
  Serious: Yes (Hospitalization, Other)
  Sender: FDA-Public Use
  Company Number: US-BAYER-2019-184378

PATIENT
  Age: 25 Year
  Sex: Male
  Weight: 79.37 kg

DRUGS (15)
  1. NEXAVAR [Suspect]
     Active Substance: SORAFENIB
     Indication: HEPATOCELLULAR CARCINOMA
     Dosage: 400 MG, BID
     Route: 048
     Dates: start: 20190916, end: 2019
  2. LABETALOL [Concomitant]
     Active Substance: LABETALOL\LABETALOL HYDROCHLORIDE
  3. LENVIMA [Suspect]
     Active Substance: LENVATINIB
     Dosage: DAILY DOSE 4 MG
     Dates: start: 20191104
  4. TRAMADOL. [Concomitant]
     Active Substance: TRAMADOL
  5. NEXAVAR [Suspect]
     Active Substance: SORAFENIB
     Indication: HEPATOCELLULAR CARCINOMA
     Dosage: UNK (DOSE REDUCED)
     Route: 048
     Dates: start: 2019, end: 2019
  6. LENVIMA [Suspect]
     Active Substance: LENVATINIB
     Dosage: DAILY DOSE 8 MG
     Dates: end: 20191029
  7. ESOMEPRAZOLE. [Concomitant]
     Active Substance: ESOMEPRAZOLE MAGNESIUM
  8. LENVIMA [Suspect]
     Active Substance: LENVATINIB
     Dosage: DAILY DOSE 4 MG
  9. ONDANSETRON [Concomitant]
     Active Substance: ONDANSETRON
  10. PILOCARPINE. [Concomitant]
     Active Substance: PILOCARPINE
  11. CHOLESTYRAMINE. [Concomitant]
     Active Substance: CHOLESTYRAMINE
  12. RAVICTI [Concomitant]
     Active Substance: GLYCEROL PHENYLBUTYRATE
  13. SPIRONOLACTONE. [Concomitant]
     Active Substance: SPIRONOLACTONE
  14. BUMETANIDE. [Concomitant]
     Active Substance: BUMETANIDE
  15. NEXAVAR [Suspect]
     Active Substance: SORAFENIB
     Indication: HEPATOCELLULAR CARCINOMA
     Dosage: 400 MG, BID
     Route: 048
     Dates: start: 2019

REACTIONS (9)
  - Blood pressure fluctuation [None]
  - Hepatic enzyme increased [Unknown]
  - Acute kidney injury [Unknown]
  - Hospitalisation [None]
  - Nausea [Unknown]
  - Hepatocellular carcinoma [Unknown]
  - Hypokalaemia [Unknown]
  - Thrombosis [None]
  - Pain [None]
